FAERS Safety Report 24366084 (Version 1)
Quarter: 2024Q3

REPORT INFORMATION
  Report Type: Spontaneous
  Country: US (occurrence: None)
  Receive Date: 20240925
  Receipt Date: 20240925
  Transmission Date: 20241017
  Serious: No
  Sender: Public
  Company Number: None

PATIENT
  Sex: Male

DRUGS (2)
  1. LENALIDOMIDE [Suspect]
     Active Substance: LENALIDOMIDE
     Indication: Plasma cell myeloma
     Route: 048
     Dates: start: 202408
  2. NINLARO [Concomitant]
     Active Substance: IXAZOMIB CITRATE

REACTIONS (4)
  - Ageusia [None]
  - Arthropathy [None]
  - Dyspnoea [None]
  - Arrhythmia [None]
